FAERS Safety Report 9177523 (Version 2)
Quarter: 2012Q4

REPORT INFORMATION
  Report Type: 
  Country: US (occurrence: US)
  Receive Date: 20120928
  Receipt Date: 20121008
  Transmission Date: 20130627
  Serious: Yes (Other)
  Sender: FDA-Public Use
  Company Number: US-RB-044873-12

PATIENT
  Sex: Male

DRUGS (1)
  1. DELSYM [Suspect]
     Indication: PRODUCT USED FOR UNKNOWN INDICATION
     Dosage: Unspecified date taking 5 to 10 oz daily
     Route: 048

REACTIONS (5)
  - Drug abuse [Unknown]
  - Hyperhidrosis [Unknown]
  - Confusional state [Unknown]
  - Lethargy [Unknown]
  - Intentional overdose [Unknown]
